FAERS Safety Report 9775676 (Version 1)
Quarter: 2013Q4

REPORT INFORMATION
  Report Type: Spontaneous
  Country: US (occurrence: US)
  Receive Date: 20131220
  Receipt Date: 20131220
  Transmission Date: 20140711
  Serious: Yes (Death, Other)
  Sender: FDA-Public Use
  Company Number: US-TEVA-451983USA

PATIENT
  Sex: Female

DRUGS (12)
  1. VALPROIC ACID [Suspect]
     Dosage: 750 MILLIGRAM DAILY; 750MG DAILY
  2. FENOFIBRATE [Suspect]
     Indication: BLOOD CHOLESTEROL
     Dosage: 200 MILLIGRAM DAILY; WITH A LARGE MEAL
  3. PROPRANOLOL [Suspect]
     Dosage: 160 MILLIGRAM DAILY;
     Route: 048
  4. ALPRAZOLAM [Suspect]
     Indication: ANXIETY
     Dosage: 1/2 TAB AM, 1TAB AT NIGHT
     Route: 048
  5. DONEPEZIL [Suspect]
     Dosage: 10 MILLIGRAM DAILY;
     Route: 048
  6. DIPHENHYDRAMINE [Suspect]
  7. ZIPRASIDONE [Suspect]
     Dosage: 160 MILLIGRAM DAILY; 80MG AM, 160MG PM
     Route: 048
  8. ZOCOR [Suspect]
     Indication: BLOOD CHOLESTEROL
     Dosage: 40 MILLIGRAM DAILY;
     Route: 048
  9. METFORMIN [Suspect]
     Indication: GLUCOSE TOLERANCE IMPAIRED
     Dosage: 500MG IN THE AM AND 1000MG PM
     Route: 048
  10. LEVETIRACETAM [Suspect]
     Dosage: 500 MILLIGRAM DAILY;
     Route: 048
  11. ANASTROZOLE [Suspect]
     Dosage: 1 MILLIGRAM DAILY;
     Route: 048
  12. SALSALATE [Suspect]
     Indication: ARTHRALGIA
     Dosage: PRN
     Route: 048

REACTIONS (4)
  - Toxicity to various agents [Fatal]
  - Intentional drug misuse [Fatal]
  - Wrong technique in drug usage process [Unknown]
  - Drug level changed [Unknown]
